FAERS Safety Report 12143665 (Version 1)
Quarter: 2016Q1

REPORT INFORMATION
  Report Type: Spontaneous
  Country: US (occurrence: US)
  Receive Date: 20160304
  Receipt Date: 20160304
  Transmission Date: 20160526
  Serious: No
  Sender: FDA-Public Use
  Company Number: US-JNJFOC-20160124034

PATIENT
  Sex: Female

DRUGS (4)
  1. ZYRTEC [Suspect]
     Active Substance: CETIRIZINE HYDROCHLORIDE
     Indication: URTICARIA
     Dosage: 2 TABLETS A DAY, AS RECOMMENDED BY THE DOCTOR
     Route: 048
  2. ZYRTEC [Suspect]
     Active Substance: CETIRIZINE HYDROCHLORIDE
     Indication: URTICARIA AQUAGENIC
     Dosage: 2 TABLETS A DAY, AS RECOMMENDED BY THE DOCTOR
     Route: 048
  3. ZYRTEC [Suspect]
     Active Substance: CETIRIZINE HYDROCHLORIDE
     Indication: HEADACHE
     Dosage: 2 TABLETS A DAY, AS RECOMMENDED BY THE DOCTOR
     Route: 048
  4. ZYRTEC [Suspect]
     Active Substance: CETIRIZINE HYDROCHLORIDE
     Indication: DIZZINESS
     Dosage: 2 TABLETS A DAY, AS RECOMMENDED BY THE DOCTOR
     Route: 048

REACTIONS (5)
  - Overdose [Unknown]
  - Prescribed overdose [None]
  - Product use issue [Unknown]
  - Off label use [Unknown]
  - Therapeutic response unexpected [Unknown]
